FAERS Safety Report 6583769-X (Version None)
Quarter: 2010Q1

REPORT INFORMATION
  Report Type: 
  Country: None (occurrence: None)
  Receive Date: 20100213
  Receipt Date: 20100213
  Transmission Date: 20100710
  Serious: Yes (Other)
  Sender: FDA-Public Use
  Company Number: None

PATIENT
  Age: 58 Year
  Sex: Female
  Weight: 72.1219 kg

DRUGS (2)
  1. LEVAQUIN [Suspect]
     Indication: SINUSITIS
     Dosage: 1 TABLET DAILY PO
     Route: 048
     Dates: start: 20090119, end: 20090130
  2. LEVAQUIN [Suspect]
     Indication: SINUSITIS
     Dosage: 1 TABLET DAILY PO
     Route: 048
     Dates: start: 20091211, end: 20091221

REACTIONS (4)
  - DYSSTASIA [None]
  - PAIN IN EXTREMITY [None]
  - PARAESTHESIA [None]
  - ROTATOR CUFF SYNDROME [None]
